FAERS Safety Report 5007964-6 (Version None)
Quarter: 2006Q2

REPORT INFORMATION
  Report Type: 
  Country: None (occurrence: None)
  Receive Date: 20060518
  Receipt Date: 20060505
  Transmission Date: 20061013
  Serious: Yes (Other)
  Sender: FDA-Public Use
  Company Number: 2006BH009501

PATIENT

DRUGS (2)
  1. MORPHINE SULFATE [Suspect]
     Indication: EPIDURAL ANAESTHESIA
     Dosage: 0.1 MG/KG; ED
     Route: 008
  2. NORMAL SALINE [Concomitant]

REACTIONS (4)
  - BRADYPNOEA [None]
  - HYPOVENTILATION [None]
  - PCO2 INCREASED [None]
  - RESPIRATORY DEPRESSION [None]
